FAERS Safety Report 19102712 (Version 1)
Quarter: 2021Q2

REPORT INFORMATION
  Report Type: Spontaneous
  Country: ZA (occurrence: ZA)
  Receive Date: 20210407
  Receipt Date: 20210407
  Transmission Date: 20210717
  Serious: Yes (Other)
  Sender: FDA-Public Use
  Company Number: ZA-ABBVIE-21K-143-3845633-00

PATIENT
  Sex: Female

DRUGS (2)
  1. METHOTREXATE. [Suspect]
     Active Substance: METHOTREXATE
     Indication: PRODUCT USED FOR UNKNOWN INDICATION
     Route: 065
  2. HUMIRA [Suspect]
     Active Substance: ADALIMUMAB
     Indication: PRODUCT USED FOR UNKNOWN INDICATION
     Route: 058
     Dates: start: 20060715

REACTIONS (6)
  - Condition aggravated [Unknown]
  - Alanine aminotransferase abnormal [Unknown]
  - Swollen joint count increased [Unknown]
  - Mycobacterium tuberculosis complex test positive [Unknown]
  - C-reactive protein increased [Unknown]
  - Tender joint count increased [Unknown]
